FAERS Safety Report 7796770-5 (Version None)
Quarter: 2011Q4

REPORT INFORMATION
  Report Type: 
  Country: None (occurrence: None)
  Receive Date: 20111005
  Receipt Date: 20110928
  Transmission Date: 20120403
  Serious: Yes (Other)
  Sender: FDA-Public Use
  Company Number: US-JNJFOC-20111000166

PATIENT
  Sex: Female

DRUGS (2)
  1. MULTI-VITAMINS [Concomitant]
     Indication: MEDICAL DIET
     Route: 048
  2. LEVAQUIN [Suspect]
     Indication: URINARY TRACT INFECTION
     Route: 048
     Dates: start: 20110120, end: 20110120

REACTIONS (1)
  - LIGAMENT RUPTURE [None]
